FAERS Safety Report 4762862-8 (Version None)
Quarter: 2005Q3

REPORT INFORMATION
  Report Type: 
  Country: None (occurrence: None)
  Receive Date: 20050907
  Receipt Date: 20050816
  Transmission Date: 20060218
  Serious: Yes (Hospitalization)
  Sender: FDA-Public Use
  Company Number: JP-NOVOPROD-246331

PATIENT
  Age: 12 Year
  Sex: Female
  Weight: 35 kg

DRUGS (2)
  1. NORDITROPIN NORDIFLEX [Suspect]
     Indication: TURNER'S SYNDROME
     Dosage: 1,55 6 TIMES A WEEK/S.C.
     Route: 058
     Dates: start: 20041102, end: 20050811
  2. MECOBALAMIN [Concomitant]

REACTIONS (4)
  - OPTIC NEURITIS [None]
  - PAPILLOEDEMA [None]
  - TURNER'S SYNDROME [None]
  - VITREOUS HAEMORRHAGE [None]
